FAERS Safety Report 7628315-4 (Version None)
Quarter: 2011Q3

REPORT INFORMATION
  Report Type: 
  Country: None (occurrence: None)
  Receive Date: 20110722
  Receipt Date: 20110718
  Transmission Date: 20111222
  Serious: Yes (Hospitalization)
  Sender: FDA-Public Use
  Company Number: US-GENZYME-RENA-1001255

PATIENT
  Sex: Male

DRUGS (3)
  1. RENAGEL [Suspect]
     Indication: HYPERPHOSPHATAEMIA
  2. RENVELA [Suspect]
     Indication: HYPERPHOSPHATAEMIA
  3. RENAGEL [Suspect]

REACTIONS (3)
  - ASTHENIA [None]
  - BALANCE DISORDER [None]
  - BLOOD CALCIUM INCREASED [None]
